FAERS Safety Report 9752479 (Version 2)
Quarter: 2013Q4

REPORT INFORMATION
  Report Type: Spontaneous
  Country: US (occurrence: US)
  Receive Date: 20131213
  Receipt Date: 20131223
  Transmission Date: 20140711
  Serious: Yes (Hospitalization)
  Sender: FDA-Public Use
  Company Number: US-RB-060897-13

PATIENT
  Age: 73 Year
  Sex: Female

DRUGS (3)
  1. MUCINEX FAST-MAX SEVERE CONGESTION AND COUGH [Suspect]
     Indication: RESPIRATORY TRACT CONGESTION
     Dosage: TOOK 20ML 3 TIMES PER DAY
     Route: 048
     Dates: start: 20131126
  2. BABY ASPIRIN [Concomitant]
     Indication: PRODUCT USED FOR UNKNOWN INDICATION
     Dosage: TOOK EVERYDAY
  3. SIMVASTATIN [Concomitant]
     Indication: BLOOD CHOLESTEROL

REACTIONS (1)
  - Dyspnoea [Recovered/Resolved]
